FAERS Safety Report 17127586 (Version 1)
Quarter: 2019Q4

REPORT INFORMATION
  Report Type: Spontaneous
  Country: GB (occurrence: GB)
  Receive Date: 20191209
  Receipt Date: 20191209
  Transmission Date: 20200122
  Serious: Yes (Life-Threatening, Hospitalization, Other)
  Sender: FDA-Public Use
  Company Number: GB-ACCORD-163249

PATIENT
  Age: 71 Year
  Sex: Male

DRUGS (5)
  1. CLOPIDOGREL [Suspect]
     Active Substance: CLOPIDOGREL BISULFATE
     Indication: PRODUCT USED FOR UNKNOWN INDICATION
     Route: 065
  2. ACETYLSALICYLIC ACID [Suspect]
     Active Substance: ASPIRIN
     Indication: PRODUCT USED FOR UNKNOWN INDICATION
     Route: 065
  3. GLYCERYL TRINITRATE [Concomitant]
     Active Substance: NITROGLYCERIN
     Indication: CHEST PAIN
     Route: 060
  4. ENOXAPARIN [Suspect]
     Active Substance: ENOXAPARIN
     Indication: PRODUCT USED FOR UNKNOWN INDICATION
     Dosage: THERAPEUTIC DOSE
     Route: 065
  5. MORPHINE [Suspect]
     Active Substance: MORPHINE
     Indication: CHEST PAIN
     Route: 048

REACTIONS (12)
  - Toxicity to various agents [Recovered/Resolved]
  - Abdominal pain [Recovered/Resolved]
  - Haemoglobin decreased [Recovered/Resolved]
  - Cardiac arrest [Recovered/Resolved]
  - Acute kidney injury [Recovered/Resolved]
  - Haemodynamic instability [Recovered/Resolved]
  - Supraventricular tachycardia [Recovered/Resolved]
  - Hypocoagulable state [Recovered/Resolved]
  - Condition aggravated [Recovered/Resolved]
  - Anuria [Recovered/Resolved]
  - Splenic haemorrhage [Recovered/Resolved]
  - Acute coronary syndrome [Recovered/Resolved]
